FAERS Safety Report 11185980 (Version 3)
Quarter: 2015Q3

REPORT INFORMATION
  Report Type: Report from Study
  Country: US (occurrence: US)
  Receive Date: 20150612
  Receipt Date: 20150807
  Transmission Date: 20151125
  Serious: Yes (Hospitalization, Other)
  Sender: FDA-Public Use
  Company Number: US-BAYER-2015-316282

PATIENT
  Age: 52 Year
  Sex: Male

DRUGS (4)
  1. NEXAVAR [Suspect]
     Active Substance: SORAFENIB
     Indication: HEPATOCELLULAR CARCINOMA
     Dosage: 400 MG
     Route: 048
     Dates: end: 20150602
  2. NEXAVAR [Suspect]
     Active Substance: SORAFENIB
     Indication: HEPATOCELLULAR CARCINOMA
     Dosage: 200 MG, BID
     Route: 048
     Dates: start: 20150522
  3. NEXAVAR [Suspect]
     Active Substance: SORAFENIB
     Indication: HEPATOCELLULAR CARCINOMA
     Dosage: 400 MG, BID
     Dates: end: 20150602
  4. NEXAVAR [Suspect]
     Active Substance: SORAFENIB
     Indication: HEPATOCELLULAR CARCINOMA
     Dosage: 200 MG, QD
     Route: 048
     Dates: start: 20150729

REACTIONS (14)
  - Confusional state [None]
  - Diarrhoea [None]
  - Ammonia increased [None]
  - Fatigue [None]
  - Body temperature increased [None]
  - Blood lactic acid increased [None]
  - Malaise [None]
  - Asthenia [None]
  - Seizure [None]
  - Nausea [None]
  - Stomatitis [None]
  - Dehydration [None]
  - Blood bilirubin increased [None]
  - Rotavirus infection [None]

NARRATIVE: CASE EVENT DATE: 2015
